FAERS Safety Report 15061626 (Version 1)
Quarter: 2018Q2

REPORT INFORMATION
  Report Type: Spontaneous
  Country: IT (occurrence: IT)
  Receive Date: 20180625
  Receipt Date: 20180625
  Transmission Date: 20180711
  Serious: Yes (Other)
  Sender: FDA-Public Use
  Company Number: PHHY2018IT028275

PATIENT
  Age: 50 Year
  Sex: Male

DRUGS (2)
  1. LEFLUNOMIDE. [Concomitant]
     Active Substance: LEFLUNOMIDE
     Indication: IMMUNOSUPPRESSION
     Dosage: UNK
     Route: 048
  2. SECUKINUMAB. [Suspect]
     Active Substance: SECUKINUMAB
     Indication: IMMUNOSUPPRESSION
     Dosage: 150 MG, UNK
     Route: 065

REACTIONS (2)
  - Erysipelas [Unknown]
  - Abscess [Unknown]

NARRATIVE: CASE EVENT DATE: 20180329
